FAERS Safety Report 7209205-8 (Version None)
Quarter: 2011Q1

REPORT INFORMATION
  Report Type: 
  Country: None (occurrence: None)
  Receive Date: 20110104
  Receipt Date: 20101216
  Transmission Date: 20110831
  Serious: Yes (Hospitalization)
  Sender: FDA-Public Use
  Company Number: A0801953A

PATIENT
  Age: 67 Year
  Sex: Female
  Weight: 115.9 kg

DRUGS (2)
  1. AVANDAMET [Suspect]
     Route: 048
  2. AVANDIA [Suspect]
     Dosage: 4MG PER DAY
     Route: 048
     Dates: start: 19980101, end: 20060101

REACTIONS (3)
  - CARDIAC FAILURE CONGESTIVE [None]
  - CORONARY ARTERY DISEASE [None]
  - ANGINA UNSTABLE [None]
